FAERS Safety Report 5402438-2 (Version None)
Quarter: 2007Q3

REPORT INFORMATION
  Report Type: 
  Country: None (occurrence: None)
  Receive Date: 20070801
  Receipt Date: 20070731
  Transmission Date: 20080115
  Serious: Yes (Other)
  Sender: FDA-Public Use
  Company Number: A0667159A

PATIENT
  Sex: Male

DRUGS (1)
  1. NICORETTE [Suspect]
     Indication: SMOKING CESSATION THERAPY

REACTIONS (4)
  - AMNESIA [None]
  - MENTAL IMPAIRMENT [None]
  - PROSTATE CANCER [None]
  - THOUGHT BLOCKING [None]
